FAERS Safety Report 18527861 (Version 1)
Quarter: 2020Q4

REPORT INFORMATION
  Report Type: Spontaneous
  Country: AU (occurrence: AU)
  Receive Date: 20201120
  Receipt Date: 20201120
  Transmission Date: 20210114
  Serious: Yes (Other)
  Sender: FDA-Public Use
  Company Number: AU-SUNOVION-2020DSP014535

PATIENT
  Age: 18 Year
  Sex: Female

DRUGS (1)
  1. LATUDA [Suspect]
     Active Substance: LURASIDONE HYDROCHLORIDE
     Indication: BIPOLAR DISORDER
     Dosage: UNK
     Route: 048
     Dates: start: 20190106, end: 20190401

REACTIONS (12)
  - Sedation [Unknown]
  - Eye disorder [Unknown]
  - Restlessness [Unknown]
  - Malaise [Unknown]
  - Off label use [Unknown]
  - Pain in extremity [Unknown]
  - Derealisation [Unknown]
  - Limb discomfort [Unknown]
  - Mental impairment [Unknown]
  - Poor quality sleep [Unknown]
  - Dizziness [Unknown]
  - Asthenia [Unknown]

NARRATIVE: CASE EVENT DATE: 20190302
